FAERS Safety Report 16138802 (Version 2)
Quarter: 2019Q1

REPORT INFORMATION
  Report Type: Spontaneous
  Country: ES (occurrence: ES)
  Receive Date: 20190330
  Receipt Date: 20190330
  Transmission Date: 20190418
  Serious: Yes (Hospitalization, Other)
  Sender: FDA-Public Use
  Company Number: PHHY2019ES067551

PATIENT
  Age: 78 Year
  Sex: Female

DRUGS (6)
  1. EFFERALGAN [Concomitant]
     Active Substance: ACETAMINOPHEN
     Indication: PRODUCT USED FOR UNKNOWN INDICATION
     Dosage: 1 DF, Q8H
     Route: 048
  2. DURAGESIC MAT [Interacting]
     Active Substance: FENTANYL
     Indication: BACK PAIN
     Dosage: 1 DF, Q72H
     Route: 062
     Dates: start: 201712
  3. TOVIAZ [Interacting]
     Active Substance: FESOTERODINE FUMARATE
     Indication: HYPERTONIC BLADDER
     Dosage: 8 MG, Q24H
     Route: 048
     Dates: start: 201301, end: 2018
  4. FLUOXETINA [Interacting]
     Active Substance: FLUOXETINE HYDROCHLORIDE
     Indication: ADJUSTMENT DISORDER WITH DEPRESSED MOOD
     Dosage: 20 MG, Q24H (1-0-0-0)
     Route: 048
     Dates: start: 201201, end: 2018
  5. EXFORGE HCT [Suspect]
     Active Substance: AMLODIPINE BESYLATE\HYDROCHLOROTHIAZIDE\VALSARTAN
     Indication: HYPERTENSION
     Dosage: 1 DF, Q24H
     Route: 048
     Dates: start: 201011
  6. LORAZEPAM. [Interacting]
     Active Substance: LORAZEPAM
     Indication: ADJUSTMENT DISORDER WITH DEPRESSED MOOD
     Dosage: 1 MG, Q24H (0-0-0-1)
     Route: 048
     Dates: start: 201201, end: 2018

REACTIONS (1)
  - Parotitis [Recovered/Resolved]

NARRATIVE: CASE EVENT DATE: 201808
